FAERS Safety Report 14263816 (Version 2)
Quarter: 2024Q1

REPORT INFORMATION
  Report Type: Spontaneous
  Country: FR (occurrence: FR)
  Receive Date: 20171208
  Receipt Date: 20240212
  Transmission Date: 20240409
  Serious: Yes (Other)
  Sender: FDA-Public Use
  Company Number: FR-AUROBINDO-AUR-APL-2017-44387

PATIENT
  Age: 8 Year
  Sex: Male

DRUGS (6)
  1. CELECOXIB [Suspect]
     Active Substance: CELECOXIB
     Indication: Atypical teratoid/rhabdoid tumour of CNS
     Dosage: DAY 1; CONTINUOUS ; CYCLICAL
     Route: 048
     Dates: start: 201604
  2. ETOPOSIDE [Suspect]
     Active Substance: ETOPOSIDE
     Indication: Atypical teratoid/rhabdoid tumour of CNS
     Dosage: 50 MG/M2, UNK
     Route: 065
  3. ETOPOSIDE [Suspect]
     Active Substance: ETOPOSIDE
     Dosage: 50 MG/M2, UNK
     Dates: start: 201604
  4. CYCLOPHOSPHAMIDE [Suspect]
     Active Substance: CYCLOPHOSPHAMIDE
     Indication: Atypical teratoid/rhabdoid tumour of CNS
     Dosage: ALTERNATING 21 DAY CYCLES ; CYCLICAL
     Route: 048
     Dates: start: 201604
  5. BEVACIZUMAB [Suspect]
     Active Substance: BEVACIZUMAB
     Indication: Atypical teratoid/rhabdoid tumour of CNS
     Dosage: 10 MG/KG, (DAYS 1, 15) ; CYCLICAL
     Route: 042
     Dates: start: 201604
  6. CYTARABINE [Suspect]
     Active Substance: CYTARABINE
     Indication: Atypical teratoid/rhabdoid tumour of CNS
     Dosage: LIPOSOMAL CYTARABINE 35 MG INTRATHECAL DAY 1 ; CYCLICAL
     Route: 039
     Dates: start: 201604

REACTIONS (7)
  - Neutropenia [Unknown]
  - Influenza [Unknown]
  - Product use issue [Unknown]
  - Asthenia [Unknown]
  - Product use in unapproved indication [Unknown]
  - Injection site reaction [Unknown]
  - Toxicity to various agents [Unknown]
